FAERS Safety Report 8243940-8 (Version None)
Quarter: 2012Q1

REPORT INFORMATION
  Report Type: 
  Country: None (occurrence: None)
  Receive Date: 20120329
  Receipt Date: 20110919
  Transmission Date: 20120608
  Serious: No
  Sender: FDA-Public Use
  Company Number: US-MYLANLABS-2011S1017441

PATIENT
  Age: 61 Year
  Sex: Female
  Weight: 87.09 kg

DRUGS (10)
  1. MULTI-VITAMINS [Concomitant]
     Route: 048
  2. ALTACE [Concomitant]
     Indication: BLOOD PRESSURE INCREASED
     Route: 048
  3. OMEPRAZOLE [Concomitant]
     Indication: GASTROOESOPHAGEAL REFLUX DISEASE
     Route: 048
  4. ESTRADIOL [Suspect]
     Indication: HORMONE REPLACEMENT THERAPY
     Dosage: QWEEK
     Route: 062
     Dates: start: 20090801, end: 20110902
  5. GABAPENTIN [Concomitant]
     Indication: FIBROMYALGIA
     Dosage: NERVE ENDING PAIN
  6. MULTI-VITAMINS [Concomitant]
  7. LEVOTHYROXINE SODIUM [Concomitant]
     Indication: HYPOTHYROIDISM
     Route: 048
  8. VITAMIN B COMPLEX CAP [Concomitant]
  9. PRAMIPEXOLE DIHYDROCHLORIDE [Concomitant]
     Indication: RESTLESS LEGS SYNDROME
     Route: 048
  10. CORAL CALCIUM [Concomitant]

REACTIONS (9)
  - MUSCULAR WEAKNESS [None]
  - BACK PAIN [None]
  - PAIN [None]
  - INSOMNIA [None]
  - PARAESTHESIA [None]
  - BURNING SENSATION [None]
  - SENSATION OF HEAVINESS [None]
  - ARTHRALGIA [None]
  - FATIGUE [None]
